FAERS Safety Report 4450250-3 (Version None)
Quarter: 2004Q3

REPORT INFORMATION
  Report Type: 
  Country: None (occurrence: None)
  Receive Date: 20040914
  Receipt Date: 20030225
  Transmission Date: 20050211
  Serious: Yes (Hospitalization)
  Sender: FDA-Public Use
  Company Number: 2004232356CA

PATIENT
  Age: 40 Year
  Sex: Female

DRUGS (4)
  1. ZYVOX [Suspect]
     Indication: CELLULITIS
     Dosage: 600 MG, BID, ORAL
     Route: 048
     Dates: start: 20021104, end: 20021108
  2. VANCOMYCIN [Concomitant]
  3. CLINDAMYCIN [Concomitant]
  4. ZYVOX [Concomitant]

REACTIONS (3)
  - BACTERIAL INFECTION [None]
  - VAGINITIS [None]
  - WOUND INFECTION [None]
